FAERS Safety Report 15011427 (Version 3)
Quarter: 2018Q4

REPORT INFORMATION
  Report Type: Spontaneous
  Country: US (occurrence: US)
  Receive Date: 20180614
  Receipt Date: 20181114
  Transmission Date: 20190204
  Serious: Yes (Hospitalization, Other)
  Sender: FDA-Public Use
  Company Number: US-OTSUKA-2018_015573

PATIENT
  Sex: Male

DRUGS (5)
  1. ABILIFY [Suspect]
     Active Substance: ARIPIPRAZOLE
     Indication: OBSESSIVE-COMPULSIVE DISORDER
  2. ABILIFY [Suspect]
     Active Substance: ARIPIPRAZOLE
     Indication: MAJOR DEPRESSION
     Dosage: 30 MG, QD
     Route: 065
     Dates: end: 2016
  3. ABILIFY [Suspect]
     Active Substance: ARIPIPRAZOLE
     Indication: POST-TRAUMATIC STRESS DISORDER
  4. ABILIFY [Suspect]
     Active Substance: ARIPIPRAZOLE
     Indication: ALCOHOL ABUSE
  5. ABILIFY [Suspect]
     Active Substance: ARIPIPRAZOLE
     Indication: ANXIETY
     Dosage: 15 MG, QD
     Route: 065
     Dates: start: 2010

REACTIONS (18)
  - Product use in unapproved indication [Unknown]
  - Mental disorder [Unknown]
  - Marital problem [Unknown]
  - Pneumothorax [Unknown]
  - Suicidal ideation [Recovered/Resolved]
  - Myocardial infarction [Unknown]
  - Bankruptcy [Unknown]
  - Economic problem [Unknown]
  - Suicide attempt [Recovered/Resolved]
  - Haemothorax [Unknown]
  - Emotional distress [Unknown]
  - Sexual dysfunction [Recovered/Resolved]
  - Treatment noncompliance [Unknown]
  - Gun shot wound [Unknown]
  - Injury [Unknown]
  - Neuropsychiatric symptoms [Unknown]
  - Gambling disorder [Recovering/Resolving]
  - Condition aggravated [Recovering/Resolving]

NARRATIVE: CASE EVENT DATE: 2012
